FAERS Safety Report 10914465 (Version 1)
Quarter: 2015Q1

REPORT INFORMATION
  Report Type: Spontaneous
  Country: FR (occurrence: FR)
  Receive Date: 20150313
  Receipt Date: 20150313
  Transmission Date: 20150721
  Serious: Yes (Other)
  Sender: FDA-Public Use
  Company Number: FR-009507513-1503FRA006856

PATIENT
  Age: 35 Year
  Sex: Female
  Weight: 75 kg

DRUGS (1)
  1. GRAZAX [Suspect]
     Active Substance: PHLEUM PRATENSE POLLEN
     Indication: PRODUCT USED FOR UNKNOWN INDICATION
     Dosage: 75000 SQ-T QD
     Route: 060
     Dates: start: 20150206, end: 20150206

REACTIONS (8)
  - Discomfort [Recovered/Resolved]
  - Asthma [Recovered/Resolved]
  - Nausea [Recovered/Resolved]
  - Pulmonary function test decreased [Recovered/Resolved]
  - Hot flush [Recovered/Resolved]
  - Cough [Recovered/Resolved]
  - Oral pruritus [Recovered/Resolved]
  - Anaphylactic reaction [Recovered/Resolved]

NARRATIVE: CASE EVENT DATE: 20150206
